FAERS Safety Report 6913900-5 (Version None)
Quarter: 2010Q3

REPORT INFORMATION
  Report Type: 
  Country: None (occurrence: None)
  Receive Date: 20100809
  Receipt Date: 20100803
  Transmission Date: 20110219
  Serious: Yes (Life-Threatening, Hospitalization)
  Sender: FDA-Public Use
  Company Number: JP-BRISTOL-MYERS SQUIBB COMPANY-15119886

PATIENT
  Age: 75 Year
  Sex: Female
  Weight: 40 kg

DRUGS (5)
  1. ERBITUX [Suspect]
     Indication: RECTAL CANCER
     Dosage: 400MG/M2:28APR2010 TO 28APR2010 250MG/M2:06MAY2010 TO 13MAY2010; NO OF INF:3
     Route: 042
     Dates: start: 20100428, end: 20100513
  2. CHLORPHENIRAMINE MALEATE [Concomitant]
     Indication: PREMEDICATION
     Route: 042
     Dates: start: 20100428, end: 20100513
  3. ALOSENN [Concomitant]
     Indication: CONSTIPATION PROPHYLAXIS
     Route: 048
     Dates: start: 20091203, end: 20100517
  4. GASTER D [Concomitant]
     Indication: GASTRITIS PROPHYLAXIS
     Dosage: TABLET
     Route: 048
     Dates: start: 20091207, end: 20100517
  5. LASIX [Concomitant]
     Indication: PROPHYLAXIS
     Route: 048
     Dates: start: 20100420, end: 20100517

REACTIONS (1)
  - RECTAL PERFORATION [None]
